FAERS Safety Report 12865661 (Version 1)
Quarter: 2016Q4

REPORT INFORMATION
  Report Type: Spontaneous
  Country: US (occurrence: US)
  Receive Date: 20161020
  Receipt Date: 20161020
  Transmission Date: 20170207
  Serious: Yes (Other)
  Sender: FDA-Public Use
  Company Number: US-TEVA-705473USA

PATIENT
  Age: 52 Year
  Sex: Female

DRUGS (8)
  1. CALCIUM WITH VITAMIN D [Concomitant]
     Active Substance: CALCIUM\VITAMIN D
     Dates: start: 20131211
  2. ATIVAN [Concomitant]
     Active Substance: LORAZEPAM
     Dates: start: 20131211
  3. COPAXONE [Suspect]
     Active Substance: GLATIRAMER ACETATE
     Indication: MULTIPLE SCLEROSIS
     Dosage: 17.1429 MILLIGRAM DAILY;
     Route: 058
     Dates: start: 20140101
  4. PEPPERMINT OIL [Concomitant]
     Active Substance: PEPPERMINT OIL
     Dates: start: 20131211
  5. ZANAFLEX [Concomitant]
     Active Substance: TIZANIDINE HYDROCHLORIDE
     Dates: start: 20131211
  6. PREVACID [Concomitant]
     Active Substance: LANSOPRAZOLE
     Dates: start: 20131211
  7. PROBIOTIC [Concomitant]
     Active Substance: PROBIOTICS NOS
     Dates: start: 20131211
  8. FIBER [Concomitant]
     Active Substance: PSYLLIUM HUSK
     Dates: start: 20131211

REACTIONS (2)
  - Multiple sclerosis relapse [Unknown]
  - Malaise [Unknown]

NARRATIVE: CASE EVENT DATE: 20160923
